FAERS Safety Report 17256594 (Version 1)
Quarter: 2020Q1

REPORT INFORMATION
  Report Type: Spontaneous
  Country: US (occurrence: US)
  Receive Date: 20200109
  Receipt Date: 20200109
  Transmission Date: 20200409
  Serious: Yes (Life-Threatening, Hospitalization, Other)
  Sender: FDA-Public Use
  Company Number: None

PATIENT
  Age: 54 Year
  Sex: Male
  Weight: 96.75 kg

DRUGS (1)
  1. GADOTERATE MEGIUMINE 0.1ML [Suspect]
     Active Substance: GADOTERATE MEGLUMINE

REACTIONS (6)
  - Loss of consciousness [None]
  - Cardiac arrest [None]
  - Anaphylactic shock [None]
  - Seizure [None]
  - Respiratory arrest [None]
  - Hypersensitivity [None]

NARRATIVE: CASE EVENT DATE: 20190628
